FAERS Safety Report 4436932-8 (Version None)
Quarter: 2004Q3

REPORT INFORMATION
  Report Type: 
  Country: None (occurrence: None)
  Receive Date: 20040726
  Receipt Date: 20040322
  Transmission Date: 20050211
  Serious: No
  Sender: FDA-Public Use
  Company Number: USA040362716

PATIENT
  Age: 76 Year
  Sex: Female

DRUGS (9)
  1. FORTEO [Suspect]
     Indication: OSTEOPOROSIS
     Dates: start: 20040301
  2. MAGNESIUM TRISILICATE [Concomitant]
  3. ASPIRIN [Concomitant]
  4. LISINOPRIL [Concomitant]
  5. DIOVAN [Concomitant]
  6. FUROSEMIDE [Concomitant]
  7. MISOPROSTOL [Concomitant]
  8. FOLIC ACID [Concomitant]
  9. CARTA XT (DILTIAZEM) [Concomitant]

REACTIONS (2)
  - FATIGUE [None]
  - INSOMNIA [None]
